FAERS Safety Report 6771825-2 (Version None)
Quarter: 2010Q2

REPORT INFORMATION
  Report Type: 
  Country: None (occurrence: None)
  Receive Date: 20100616
  Receipt Date: 20100325
  Transmission Date: 20101027
  Serious: Yes (Hospitalization, Other)
  Sender: FDA-Public Use
  Company Number: US-BAYER-201014089NA

PATIENT
  Age: 22 Year
  Sex: Female
  Weight: 73 kg

DRUGS (1)
  1. YASMIN [Suspect]
     Indication: ORAL CONTRACEPTION
     Route: 048
     Dates: start: 20000101, end: 20040101

REACTIONS (4)
  - ABDOMINAL PAIN UPPER [None]
  - CHOLELITHIASIS [None]
  - GASTROOESOPHAGEAL REFLUX DISEASE [None]
  - MIGRAINE [None]
